FAERS Safety Report 6026693-3 (Version None)
Quarter: 2008Q4

REPORT INFORMATION
  Report Type: 
  Country: None (occurrence: None)
  Receive Date: 20081231
  Receipt Date: 20081216
  Transmission Date: 20090506
  Serious: Yes (Other)
  Sender: FDA-Public Use
  Company Number: 2008S1017386

PATIENT
  Age: 66 Year
  Sex: Male

DRUGS (14)
  1. FENTANYL TRANSDERMAL SYSTEM [Suspect]
     Indication: MUSCULOSKELETAL PAIN
     Dosage: 50 UG; EVERY HOUR; TRANSDERMAL
     Route: 062
     Dates: start: 20080923, end: 20080924
  2. FENTANYL TRANSDERMAL SYSTEM [Suspect]
     Indication: PAIN
     Dosage: 50 UG; EVERY HOUR; TRANSDERMAL
     Route: 062
     Dates: start: 20080923, end: 20080924
  3. LISINOPRIL [Concomitant]
  4. XANAX [Concomitant]
  5. MELOXICAM [Concomitant]
  6. CRESTOR [Concomitant]
  7. PREVACID [Concomitant]
  8. COREG [Concomitant]
  9. TIZANIDINE HCL [Concomitant]
  10. JOINT FORMULA [Concomitant]
  11. CALTRATE + D [Concomitant]
  12. VITAMIN D [Concomitant]
  13. LOVAZA [Concomitant]
  14. NIASPAN [Concomitant]

REACTIONS (4)
  - BLOOD PRESSURE INCREASED [None]
  - CHEST PAIN [None]
  - DIZZINESS [None]
  - HYPOAESTHESIA [None]
